FAERS Safety Report 9776143 (Version 1)
Quarter: 2013Q4

REPORT INFORMATION
  Report Type: Spontaneous
  Country: US (occurrence: US)
  Receive Date: 20131220
  Receipt Date: 20131220
  Transmission Date: 20140711
  Serious: No
  Sender: FDA-Public Use
  Company Number: US-ENDO PHARMACEUTICALS INC.-SOTA20120009

PATIENT
  Sex: Female

DRUGS (1)
  1. SOTALOL HYDROCHLORIDE TABLETS 80MG [Suspect]
     Indication: CARDIAC DISORDER
     Route: 048
     Dates: start: 2009

REACTIONS (2)
  - Sensation of foreign body [Not Recovered/Not Resolved]
  - Dizziness [Not Recovered/Not Resolved]
